FAERS Safety Report 5288196-3 (Version None)
Quarter: 2007Q1

REPORT INFORMATION
  Report Type: 
  Country: None (occurrence: None)
  Receive Date: 20070330
  Receipt Date: 20070305
  Transmission Date: 20070707
  Serious: Yes (Death)
  Sender: FDA-Public Use
  Company Number: JP200702005816

PATIENT
  Age: 28 Year
  Sex: Female
  Weight: 57.4 kg

DRUGS (13)
  1. H6D-MC-LVGY PHASE III CIALIS IN PAH (5-A(TADALAFIL) TABLET [Suspect]
     Indication: PULMONARY HYPERTENSION
     Dosage: 20 MG, EACH MORNING, ORAL
     Route: 048
     Dates: start: 20070215, end: 20070301
  2. PROCYLIN (BERAPROST SODIUM) [Concomitant]
  3. SELBEX (TEPRENONE) [Concomitant]
  4. WARFARIN SODIUM [Concomitant]
  5. ONEALFA (ALFACALCIDOL) [Concomitant]
  6. BAKTAR (SULFAMETHOXAZOLE, TRIMETHOPRIM) [Concomitant]
  7. MEVALOTIN /JPN/ (PRAVASTATIN SODIUM) [Concomitant]
  8. BONALON (ALENDRONIC ACID) [Concomitant]
  9. PREDNISOLONE [Concomitant]
  10. PREDNISOLONE [Concomitant]
  11. TRACLEER [Concomitant]
  12. ACECOL (TEMOCAPRIL HYDROCHLORIDE) [Concomitant]
  13. AMLODIPINE BESYLATE [Concomitant]

REACTIONS (26)
  - ANAEMIA [None]
  - BACTERIA URINE IDENTIFIED [None]
  - BLOOD PRESSURE DECREASED [None]
  - C-REACTIVE PROTEIN INCREASED [None]
  - CARDIO-RESPIRATORY ARREST [None]
  - CULTURE URINE POSITIVE [None]
  - DISSEMINATED INTRAVASCULAR COAGULATION [None]
  - DYSPNOEA [None]
  - EYELID OEDEMA [None]
  - EYELID PAIN [None]
  - HAEMOLYSIS [None]
  - HAEMORRHAGIC DIATHESIS [None]
  - HEADACHE [None]
  - HEART RATE INCREASED [None]
  - HISTIOCYTOSIS HAEMATOPHAGIC [None]
  - INFECTION [None]
  - MALAISE [None]
  - NAUSEA [None]
  - OSTEOPOROSIS [None]
  - PLEURAL EFFUSION [None]
  - PULMONARY ALVEOLAR HAEMORRHAGE [None]
  - PULMONARY HYPERTENSION [None]
  - PYREXIA [None]
  - SYSTEMIC LUPUS ERYTHEMATOSUS [None]
  - THROMBOTIC THROMBOCYTOPENIC PURPURA [None]
  - WHITE BLOOD CELLS URINE POSITIVE [None]
